FAERS Safety Report 8620781-0 (Version None)
Quarter: 2012Q3

REPORT INFORMATION
  Report Type: 
  Country: None (occurrence: None)
  Receive Date: 20120816
  Receipt Date: 20120816
  Transmission Date: 20120928
  Serious: Yes (Other)
  Sender: FDA-Public Use
  Company Number: None

PATIENT
  Age: 28 Year
  Sex: Female
  Weight: 53.0709 kg

DRUGS (1)
  1. LOESTRIN FE 1/20 [Suspect]
     Indication: CONTRACEPTION
     Dosage: ONE PILL, DAILY, PO
     Route: 048
     Dates: start: 20120223, end: 20120321

REACTIONS (5)
  - PANIC ATTACK [None]
  - MOOD SWINGS [None]
  - CRYING [None]
  - WEIGHT INCREASED [None]
  - POLLAKIURIA [None]
